FAERS Safety Report 10409940 (Version 1)
Quarter: 2014Q3

REPORT INFORMATION
  Report Type: Report from Study
  Country: ZA (occurrence: ZA)
  Receive Date: 20140826
  Receipt Date: 20140826
  Transmission Date: 20150326
  Serious: Yes (Hospitalization)
  Sender: FDA-Public Use
  Company Number: ZA-BAYER-2014-060138

PATIENT
  Sex: Female

DRUGS (1)
  1. BETAFERON [Suspect]
     Active Substance: INTERFERON BETA-1B
     Indication: MULTIPLE SCLEROSIS

REACTIONS (10)
  - Optic neuritis [None]
  - Rash [None]
  - Lymph node pain [None]
  - Cough [Recovering/Resolving]
  - Migraine [None]
  - Sinusitis [Recovering/Resolving]
  - Injection site pain [None]
  - Hypoaesthesia [None]
  - Injection site bruising [None]
  - Injection site reaction [None]

NARRATIVE: CASE EVENT DATE: 201012
